FAERS Safety Report 26180158 (Version 1)
Quarter: 2025Q4

REPORT INFORMATION
  Report Type: Spontaneous
  Country: US (occurrence: US)
  Receive Date: 20251219
  Receipt Date: 20251219
  Transmission Date: 20260117
  Serious: No
  Sender: MERCK SHARP & DOHME LLC
  Company Number: US-009507513-2356147

PATIENT
  Sex: Female
  Weight: 72.575 kg

DRUGS (37)
  1. WINREVAIR [Suspect]
     Active Substance: SOTATERCEPT-CSRK
  2. WINREVAIR [Suspect]
     Active Substance: SOTATERCEPT-CSRK
  3. WINREVAIR [Suspect]
     Active Substance: SOTATERCEPT-CSRK
  4. WINREVAIR [Suspect]
     Active Substance: SOTATERCEPT-CSRK
  5. ADEMPAS [Suspect]
     Active Substance: RIOCIGUAT
     Dosage: 2 MG THREE TIMES
  6. ADEMPAS [Suspect]
     Active Substance: RIOCIGUAT
     Dosage: UNKNOWN
  7. PREVACID [Concomitant]
     Active Substance: LANSOPRAZOLE
  8. PLAQUENIL [Concomitant]
     Active Substance: HYDROXYCHLOROQUINE SULFATE
  9. ALDACTONE [Concomitant]
     Active Substance: SPIRONOLACTONE
  10. ACETAMINOPHEN [Concomitant]
     Active Substance: ACETAMINOPHEN
  11. ACETAMINOPHEN\HYDROCODONE [Concomitant]
     Active Substance: ACETAMINOPHEN\HYDROCODONE
  12. LEVOTHYROXINE SODIUM [Concomitant]
     Active Substance: LEVOTHYROXINE SODIUM
  13. JARDIANCE [Concomitant]
     Active Substance: EMPAGLIFLOZIN
  14. ZOLOFT [Concomitant]
     Active Substance: SERTRALINE HYDROCHLORIDE
  15. PFIZER COVID-19 VACCINE (EUA) [Concomitant]
  16. AZELASTINE HYDROCHLORIDE [Concomitant]
     Active Substance: AZELASTINE HYDROCHLORIDE
  17. D3-50 [Concomitant]
  18. SERTRALINE HYDROCHLORIDE [Concomitant]
     Active Substance: SERTRALINE HYDROCHLORIDE
  19. NORCO TABS [Concomitant]
  20. FENTANYL [Concomitant]
     Active Substance: FENTANYL
  21. CLOTRIMAZOLE AND BETAMETHASONE DIPROPIONATE [Concomitant]
     Active Substance: BETAMETHASONE\BETAMETHASONE DIPROPIONATE\CLOTRIMAZOLE
  22. CLARITIN [Concomitant]
     Active Substance: LORATADINE
  23. LETAIRIS [Concomitant]
     Active Substance: AMBRISENTAN
  24. THERA-M [Concomitant]
  25. AMITRIPTYLINE HYDROCHLORIDE [Concomitant]
     Active Substance: AMITRIPTYLINE HYDROCHLORIDE
  26. HYDROXYCHLOROQUINE SULFATE [Concomitant]
     Active Substance: HYDROXYCHLOROQUINE SULFATE
  27. SPIRONOLACTONE [Concomitant]
     Active Substance: SPIRONOLACTONE
  28. IBUPROFEN [Concomitant]
     Active Substance: IBUPROFEN
  29. TORSEMIDE [Concomitant]
     Active Substance: TORSEMIDE
  30. GABAPENTIN [Concomitant]
     Active Substance: GABAPENTIN
  31. BENADRYL [Concomitant]
     Active Substance: DIPHENHYDRAMINE HYDROCHLORIDE
  32. NEURONTIN [Concomitant]
     Active Substance: GABAPENTIN
  33. AMBRISENTAN [Concomitant]
     Active Substance: AMBRISENTAN
  34. ONDANSETRON HYDROCHLORIDE [Concomitant]
     Active Substance: ONDANSETRON HYDROCHLORIDE
  35. PSEUDOEPHEDRINE HYDROCHLORIDE [Concomitant]
     Active Substance: PSEUDOEPHEDRINE HYDROCHLORIDE
  36. LORATADINE [Concomitant]
     Active Substance: LORATADINE
  37. TREPROSTINIL SODIUM [Suspect]
     Active Substance: TREPROSTINIL SODIUM
     Indication: Pulmonary arterial hypertension
     Dosage: 82 NG/KG/MIN - SUBCUT, FREQ: CONTINUOUS
     Route: 058

REACTIONS (1)
  - Hypotension [Unknown]
